FAERS Safety Report 9289591 (Version 2)
Quarter: 2013Q3

REPORT INFORMATION
  Report Type: Spontaneous
  Country: GB (occurrence: GB)
  Receive Date: 20130515
  Receipt Date: 20130916
  Transmission Date: 20140515
  Serious: Yes (Hospitalization, Other)
  Sender: FDA-Public Use
  Company Number: GB-ROCHE-1224342

PATIENT
  Age: 55 Year
  Sex: Female
  Weight: 75 kg

DRUGS (12)
  1. RIBAVIRIN [Suspect]
     Indication: CHRONIC HEPATITIS C
     Dosage: 400MG IN THE MORNING, 600MG IN THE EVENING
     Route: 048
     Dates: start: 20121023, end: 20121120
  2. RIBAVIRIN [Suspect]
     Route: 048
     Dates: start: 20121204, end: 20121214
  3. RIBAVIRIN [Suspect]
     Dosage: 200MG IN THE MORNING, 400MG IN THE EVENING
     Route: 048
     Dates: start: 20121214, end: 20130115
  4. RIBAVIRIN [Suspect]
     Route: 048
     Dates: start: 20130115, end: 20130131
  5. RIBAVIRIN [Suspect]
     Dosage: 200MG IN THE MORNING, 400MG IN THE EVENING
     Route: 048
     Dates: start: 20130131, end: 20130212
  6. RIBAVIRIN [Suspect]
     Route: 048
     Dates: start: 20130212, end: 20130227
  7. RIBAVIRIN [Suspect]
     Dosage: THEN 1000 MG A DAY, 400MG IN THE MORNING, 600MG IN THE EVENING
     Route: 048
     Dates: start: 20130227
  8. INCIVO [Suspect]
     Indication: CHRONIC HEPATITIS C
     Route: 048
     Dates: start: 20121023, end: 20121207
  9. PEGINTERFERON ALFA-2B [Suspect]
     Indication: CHRONIC HEPATITIS C
     Route: 065
     Dates: start: 20121023, end: 20121207
  10. PARACETAMOL [Concomitant]
     Route: 065
  11. XYLOPROCT [Concomitant]
  12. TRIMETHOPRIM [Concomitant]

REACTIONS (27)
  - Nausea [Recovering/Resolving]
  - Renal failure acute [Recovered/Resolved]
  - Vomiting [Recovering/Resolving]
  - Dehydration [Unknown]
  - Vertigo [Not Recovered/Not Resolved]
  - Rash [Recovering/Resolving]
  - Urinary tract infection [Recovered/Resolved]
  - Pharyngitis [Recovered/Resolved]
  - Malaise [Unknown]
  - Haemorrhoids [Unknown]
  - Painful defaecation [Unknown]
  - Headache [Unknown]
  - Pain in extremity [Unknown]
  - Fatigue [Unknown]
  - Rash [Unknown]
  - Anaemia [Unknown]
  - Cystitis [Unknown]
  - Proctalgia [Unknown]
  - Dry skin [Unknown]
  - Pharyngitis [Unknown]
  - Painful defaecation [Unknown]
  - Malaise [Unknown]
  - Eczema [Recovering/Resolving]
  - Cystitis [Unknown]
  - Oral candidiasis [Unknown]
  - Proctalgia [Unknown]
  - Pain in extremity [Unknown]
